FAERS Safety Report 8142752-3 (Version None)
Quarter: 2012Q1

REPORT INFORMATION
  Report Type: 
  Country: None (occurrence: None)
  Receive Date: 20120216
  Receipt Date: 20120208
  Transmission Date: 20120608
  Serious: Yes (Other)
  Sender: FDA-Public Use
  Company Number: NO-ASTRAZENECA-2012SE08508

PATIENT
  Sex: Female

DRUGS (3)
  1. METOPROLOL SUCCINATE [Concomitant]
     Route: 048
  2. INDERAL [Suspect]
     Route: 065
  3. ATACAND [Suspect]
     Indication: MIGRAINE
     Route: 048

REACTIONS (4)
  - THERAPEUTIC RESPONSE UNEXPECTED [None]
  - INSOMNIA [None]
  - OFF LABEL USE [None]
  - CEREBROVASCULAR ACCIDENT [None]
